FAERS Safety Report 11844678 (Version 1)
Quarter: 2015Q4

REPORT INFORMATION
  Report Type: Spontaneous
  Country: US (occurrence: None)
  Receive Date: 20151216
  Receipt Date: 20151216
  Transmission Date: 20160305
  Serious: Yes (Other)
  Sender: FDA-Public Use
  Company Number: None

PATIENT
  Age: 72 Year
  Sex: Female
  Weight: 90.72 kg

DRUGS (3)
  1. JARDIANCE [Suspect]
     Active Substance: EMPAGLIFLOZIN
     Indication: BLOOD GLUCOSE INCREASED
     Dates: start: 20151022, end: 20151127
  2. METFORMAN [Concomitant]
  3. TOUJEO [Suspect]
     Active Substance: INSULIN GLARGINE
     Indication: DIABETES MELLITUS INADEQUATE CONTROL
     Dosage: 70 UNITS NEEDLE ONCE DAILY INTO THE MUSCLE
     Route: 030
     Dates: start: 20151023, end: 20151213

REACTIONS (2)
  - Rash [None]
  - No therapeutic response [None]

NARRATIVE: CASE EVENT DATE: 20151201
